FAERS Safety Report 26213038 (Version 1)
Quarter: 2025Q4

REPORT INFORMATION
  Report Type: Spontaneous
  Country: US (occurrence: None)
  Receive Date: 20251230
  Receipt Date: 20251230
  Transmission Date: 20260117
  Serious: No
  Sender: INCYTE
  Company Number: US-INCYTE CORPORATION-2025IN014238

PATIENT
  Weight: 11.383 kg

DRUGS (1)
  1. JAKAFI [Suspect]
     Active Substance: RUXOLITINIB
     Indication: Gastrointestinal inflammation
     Dosage: 10 MILLIGRAM, BID (TAKE 1 TABLET IN THE MORNING AND 1 TABLET IN THE EVENING)
     Route: 061

REACTIONS (1)
  - Off label use [Unknown]
